FAERS Safety Report 24276909 (Version 3)
Quarter: 2024Q3

REPORT INFORMATION
  Report Type: Report from Study
  Country: US (occurrence: US)
  Receive Date: 20240903
  Receipt Date: 20240913
  Transmission Date: 20241016
  Serious: Yes (Hospitalization, Other)
  Sender: BAYER
  Company Number: US-BAYER-2024A116301

PATIENT
  Age: 47 Year
  Sex: Female
  Weight: 49.887 kg

DRUGS (24)
  1. ADEMPAS [Suspect]
     Active Substance: RIOCIGUAT
     Indication: Pulmonary arterial hypertension
     Dosage: UNK
     Dates: start: 2020
  2. ADEMPAS [Suspect]
     Active Substance: RIOCIGUAT
     Indication: Pulmonary arterial hypertension
     Dosage: UNK
     Dates: start: 20211117
  3. ADEMPAS [Suspect]
     Active Substance: RIOCIGUAT
     Indication: Pulmonary arterial hypertension
     Dosage: 2.5 MG, TID
     Route: 048
  4. ADEMPAS [Suspect]
     Active Substance: RIOCIGUAT
     Indication: Pulmonary arterial hypertension
     Dosage: 1 MG, TID
     Route: 048
  5. PREDNISONE [Concomitant]
     Active Substance: PREDNISONE
  6. FOLIC ACID [Concomitant]
     Active Substance: FOLIC ACID
  7. TYLENOL EXTRA STRENGTH [Concomitant]
     Active Substance: ACETAMINOPHEN
  8. BACLOFEN [Concomitant]
     Active Substance: BACLOFEN
  9. KETAMINE HYDROCHLORIDE [Concomitant]
     Active Substance: KETAMINE HYDROCHLORIDE
  10. LECITHIN [Concomitant]
     Active Substance: LECITHIN
  11. HYDROXYCHLOROQUINE SULFATE [Concomitant]
     Active Substance: HYDROXYCHLOROQUINE SULFATE
  12. POTASSIUM CHLORIDE [Concomitant]
     Active Substance: POTASSIUM CHLORIDE
  13. DICLOFENAC SODIUM [Concomitant]
     Active Substance: DICLOFENAC\DICLOFENAC SODIUM
  14. CLONIDINE [Concomitant]
     Active Substance: CLONIDINE
  15. KETOPROFEN [Concomitant]
     Active Substance: KETOPROFEN
  16. OXYGEN [Concomitant]
     Active Substance: OXYGEN
  17. LIDOCAINE HYDROCHLORIDE [Concomitant]
     Active Substance: LIDOCAINE HYDROCHLORIDE
  18. FUROSEMIDE [Concomitant]
     Active Substance: FUROSEMIDE
  19. TREPROSTINIL SODIUM [Concomitant]
     Active Substance: TREPROSTINIL SODIUM
     Route: 058
  20. AMITRIPTYLINE HYDROCHLORIDE [Concomitant]
     Active Substance: AMITRIPTYLINE HYDROCHLORIDE
  21. GABAPENTIN [Concomitant]
     Active Substance: GABAPENTIN
  22. POLOXAMER [Concomitant]
     Active Substance: POLOXAMER
  23. AMBRISENTAN [Concomitant]
     Active Substance: AMBRISENTAN
  24. FERROUS SULFATE [Concomitant]
     Active Substance: FERROUS SULFATE

REACTIONS (14)
  - Dyspnoea [Recovered/Resolved]
  - Pulmonary hypertension [Recovered/Resolved]
  - Oedema peripheral [Recovered/Resolved]
  - Hypervolaemia [Recovered/Resolved]
  - Generalised oedema [None]
  - Insomnia [None]
  - Abdominal abscess [None]
  - Lung disorder [None]
  - Peripheral swelling [None]
  - Haemorrhage [None]
  - Feeling abnormal [Recovered/Resolved]
  - Product administration interrupted [None]
  - Limb injury [None]
  - Peripheral swelling [None]

NARRATIVE: CASE EVENT DATE: 20240101
